FAERS Safety Report 7719791-7 (Version None)
Quarter: 2011Q3

REPORT INFORMATION
  Report Type: 
  Country: None (occurrence: None)
  Receive Date: 20110831
  Receipt Date: 20110818
  Transmission Date: 20111222
  Serious: No
  Sender: FDA-Public Use
  Company Number: US-BIOGENIDEC-2008BI035209

PATIENT
  Sex: Female

DRUGS (2)
  1. TYSABRI [Suspect]
     Route: 042
     Dates: start: 20100903
  2. TYSABRI [Suspect]
     Indication: MULTIPLE SCLEROSIS
     Route: 042
     Dates: start: 20070116, end: 20091231

REACTIONS (19)
  - PARAESTHESIA [None]
  - HEADACHE [None]
  - GAIT DISTURBANCE [None]
  - MUSCLE SPASTICITY [None]
  - FALL [None]
  - PAIN IN EXTREMITY [None]
  - TOOTHACHE [None]
  - SINUSITIS [None]
  - TOOTH ABSCESS [None]
  - BURSITIS [None]
  - SENSATION OF HEAVINESS [None]
  - MULTIPLE SCLEROSIS [None]
  - TEMPERATURE INTOLERANCE [None]
  - ARTHRITIS [None]
  - BALANCE DISORDER [None]
  - BACK PAIN [None]
  - MUSCULAR WEAKNESS [None]
  - ABSCESS ORAL [None]
  - FATIGUE [None]
